FAERS Safety Report 12993358 (Version 2)
Quarter: 2016Q4

REPORT INFORMATION
  Report Type: Spontaneous
  Country: JP (occurrence: JP)
  Receive Date: 20161202
  Receipt Date: 20161207
  Transmission Date: 20170207
  Serious: Yes (Other)
  Sender: FDA-Public Use
  Company Number: JP-FERRINGPH-2016FE06363

PATIENT

DRUGS (3)
  1. DESMOPRESSIN [Suspect]
     Active Substance: DESMOPRESSIN
     Dosage: 5 ?G, DAILY
     Route: 045
     Dates: start: 201311, end: 201311
  2. WARFARIN [Concomitant]
     Active Substance: WARFARIN
     Indication: EMBOLISM
     Route: 048
  3. DESMOPRESSIN [Suspect]
     Active Substance: DESMOPRESSIN
     Indication: DIABETES INSIPIDUS
     Dosage: 7.5 ?G, DAILY
     Route: 045
     Dates: start: 201311

REACTIONS (2)
  - Contraindicated product administered [Recovered/Resolved]
  - Cardiac failure [Recovered/Resolved]

NARRATIVE: CASE EVENT DATE: 201406
